FAERS Safety Report 5830339-4 (Version None)
Quarter: 2008Q3

REPORT INFORMATION
  Report Type: 
  Country: None (occurrence: None)
  Receive Date: 20080801
  Receipt Date: 20080721
  Transmission Date: 20090109
  Serious: Yes (Other)
  Sender: FDA-Public Use
  Company Number: US-JNJCH-2008019042

PATIENT
  Age: 28 Year
  Sex: Male
  Weight: 82.6 kg

DRUGS (1)
  1. LISTERINE TOOTHPASTE [Suspect]
     Indication: DENTAL CARE
     Dosage: TEXT:1 INCH 2 TIMES A DAY
     Route: 048
     Dates: start: 20080718, end: 20080721

REACTIONS (1)
  - AGEUSIA [None]
